FAERS Safety Report 19697102 (Version 1)
Quarter: 2021Q3

REPORT INFORMATION
  Report Type: Spontaneous
  Country: US (occurrence: US)
  Receive Date: 20210813
  Receipt Date: 20210813
  Transmission Date: 20211014
  Serious: No
  Sender: FDA-Public Use
  Company Number: None

PATIENT

DRUGS (1)
  1. AKLIEF [Suspect]
     Active Substance: TRIFAROTENE
     Route: 061
     Dates: start: 20210812, end: 20210813

REACTIONS (4)
  - Hypersensitivity [None]
  - Palpitations [None]
  - Swollen tongue [None]
  - Pharyngeal swelling [None]

NARRATIVE: CASE EVENT DATE: 20210812
